FAERS Safety Report 19076571 (Version 1)
Quarter: 2021Q1

REPORT INFORMATION
  Report Type: Spontaneous
  Country: US (occurrence: US)
  Receive Date: 20210331
  Receipt Date: 20210331
  Transmission Date: 20210420
  Serious: Yes (Life-Threatening, Hospitalization, Other)
  Sender: FDA-Public Use
  Company Number: US-LEADINGPHARMA-US-2021LEALIT00115

PATIENT
  Age: 36 Year
  Sex: Female

DRUGS (1)
  1. LIDOCAINE. [Suspect]
     Active Substance: LIDOCAINE
     Indication: LIPOSUCTION
     Dosage: 30MG/KG
     Route: 050

REACTIONS (4)
  - Dyspnoea [Recovering/Resolving]
  - Toxicity to various agents [Unknown]
  - Pulse absent [Recovering/Resolving]
  - Tremor [Recovering/Resolving]
